FAERS Safety Report 9637399 (Version 1)
Quarter: 2013Q4

REPORT INFORMATION
  Report Type: Spontaneous
  Country: DE (occurrence: DE)
  Receive Date: 20131022
  Receipt Date: 20131022
  Transmission Date: 20140711
  Serious: Yes (Other)
  Sender: FDA-Public Use
  Company Number: DE-TEVA-437999GER

PATIENT
  Sex: Male

DRUGS (1)
  1. TRISENOX [Suspect]

REACTIONS (1)
  - Atrial fibrillation [Unknown]
